FAERS Safety Report 5588787-6 (Version None)
Quarter: 2008Q1

REPORT INFORMATION
  Report Type: 
  Country: None (occurrence: None)
  Receive Date: 20080111
  Receipt Date: 20080107
  Transmission Date: 20080703
  Serious: Yes (Other)
  Sender: FDA-Public Use
  Company Number: B0502334A

PATIENT

DRUGS (2)
  1. FLIXOTIDE [Suspect]
     Indication: DRUG USE FOR UNKNOWN INDICATION
     Route: 065
  2. NORVIR [Suspect]
     Indication: HIV INFECTION
     Route: 065

REACTIONS (3)
  - ADRENAL INSUFFICIENCY [None]
  - DRUG INTERACTION [None]
  - HYPERCORTICOIDISM [None]
